FAERS Safety Report 17307063 (Version 3)
Quarter: 2020Q1

REPORT INFORMATION
  Report Type: Spontaneous
  Country: US (occurrence: US)
  Receive Date: 20200123
  Receipt Date: 20200320
  Transmission Date: 20200409
  Serious: Yes (Hospitalization)
  Sender: FDA-Public Use
  Company Number: US-GW PHARMA-202001USGW00188

PATIENT

DRUGS (6)
  1. EPIDIOLEX [Suspect]
     Active Substance: CANNABIDIOL
     Dosage: 200 MILLIGRAM, BID
     Route: 048
  2. CLONAZEPAM. [Concomitant]
     Active Substance: CLONAZEPAM
     Dosage: TAPERING OFF
     Route: 065
  3. CLONAZEPAM. [Concomitant]
     Active Substance: CLONAZEPAM
     Indication: SEIZURE
     Dosage: 0.75 MILLIGRAM, TID
     Route: 065
  4. EPIDIOLEX [Suspect]
     Active Substance: CANNABIDIOL
     Indication: EPILEPSY
     Dosage: 150 MILLIGRAM, BID
     Route: 048
     Dates: start: 20190221
  5. LORAZEPAM. [Concomitant]
     Active Substance: LORAZEPAM
     Indication: PRODUCT USED FOR UNKNOWN INDICATION
     Dosage: UNK
     Route: 065
  6. CLONAZEPAM. [Concomitant]
     Active Substance: CLONAZEPAM
     Dosage: DECREASING DOSE OVER SEVERAL DAYS
     Route: 065
     Dates: start: 2020

REACTIONS (6)
  - Influenza [Recovering/Resolving]
  - Vomiting [Unknown]
  - Pyrexia [Unknown]
  - Status epilepticus [Recovering/Resolving]
  - Infection [Unknown]
  - Feeding intolerance [Unknown]

NARRATIVE: CASE EVENT DATE: 201912
